FAERS Safety Report 7919803-1 (Version None)
Quarter: 2011Q4

REPORT INFORMATION
  Report Type: 
  Country: None (occurrence: None)
  Receive Date: 20111117
  Receipt Date: 20111115
  Transmission Date: 20120403
  Serious: Yes (Other)
  Sender: FDA-Public Use
  Company Number: US-JNJFOC-20111001424

PATIENT
  Age: 65 Year
  Sex: Female

DRUGS (5)
  1. DOXIL [Suspect]
     Route: 042
  2. TOPOTECAN [Suspect]
     Indication: OVARIAN CANCER METASTATIC
     Route: 065
  3. TOPOTECAN [Suspect]
     Route: 065
  4. (NOS) CHEMOTHERAPY [Suspect]
     Indication: OVARIAN CANCER METASTATIC
     Route: 065
  5. DOXIL [Suspect]
     Indication: OVARIAN CANCER METASTATIC
     Route: 042

REACTIONS (1)
  - NEOPLASM RECURRENCE [None]
